FAERS Safety Report 4558153-0 (Version None)
Quarter: 2005Q1

REPORT INFORMATION
  Report Type: 
  Country: None (occurrence: None)
  Receive Date: 20050103
  Receipt Date: 20040927
  Transmission Date: 20050727
  Serious: Yes (Other)
  Sender: FDA-Public Use
  Company Number: 2004UW20336

PATIENT
  Age: 87 Year
  Sex: Female
  Weight: 65.7716 kg

DRUGS (7)
  1. CRESTOR [Suspect]
     Indication: HYPERCHOLESTEROLAEMIA
     Dosage: 10 MG QD PO
     Route: 048
  2. CLONIDINE [Concomitant]
  3. LEVOXYL [Concomitant]
  4. LANOXIN [Concomitant]
  5. NORVASC [Concomitant]
  6. PREMARIN [Concomitant]
  7. ZETIA [Concomitant]

REACTIONS (2)
  - ASTHENIA [None]
  - DIFFICULTY IN WALKING [None]
